FAERS Safety Report 8611054 (Version 2)
Quarter: 2013Q2

REPORT INFORMATION
  Report Type: Spontaneous
  Country: US (occurrence: US)
  Receive Date: 20120612
  Receipt Date: 20130412
  Transmission Date: 20140414
  Serious: No
  Sender: FDA-Public Use
  Company Number: US-ASTRAZENECA-2012SE36520

PATIENT
  Age: 78 Year
  Sex: Male

DRUGS (3)
  1. NEXIUM [Suspect]
     Route: 048
  2. NEXIUM [Suspect]
     Route: 048
  3. OMEPRAZOLE [Suspect]
     Route: 048

REACTIONS (4)
  - Ulcer [Unknown]
  - Off label use [Unknown]
  - Intentional drug misuse [Unknown]
  - Drug ineffective [Unknown]
